FAERS Safety Report 10753795 (Version 1)
Quarter: 2015Q1

REPORT INFORMATION
  Report Type: Spontaneous
  Country: US (occurrence: None)
  Receive Date: 20150129
  Receipt Date: 20150129
  Transmission Date: 20150721
  Serious: Yes (Disabling)
  Sender: FDA-Public Use
  Company Number: None

PATIENT
  Age: 44 Year
  Sex: Male
  Weight: 106.6 kg

DRUGS (1)
  1. LYRICA [Suspect]
     Active Substance: PREGABALIN
     Indication: NEURALGIA
     Dosage: 1 CAP
     Route: 048
     Dates: start: 20150121, end: 20150128

REACTIONS (10)
  - Dizziness [None]
  - Tremor [None]
  - Anxiety [None]
  - Dyspnoea [None]
  - Sedation [None]
  - Palpitations [None]
  - Mental disorder [None]
  - Product quality issue [None]
  - Dry mouth [None]
  - Thinking abnormal [None]

NARRATIVE: CASE EVENT DATE: 20150121
